FAERS Safety Report 8424479-3 (Version None)
Quarter: 2012Q2

REPORT INFORMATION
  Report Type: 
  Country: None (occurrence: None)
  Receive Date: 20120610
  Receipt Date: 20120531
  Transmission Date: 20120825
  Serious: Yes (Hospitalization, Other)
  Sender: FDA-Public Use
  Company Number: US-VERTEX PHARMACEUTICALS INC.-AE-2012-007871

PATIENT
  Sex: Male
  Weight: 73.094 kg

DRUGS (5)
  1. RIBAVIRIN [Concomitant]
     Indication: HEPATITIS C
     Route: 048
     Dates: start: 20120502, end: 20120530
  2. RIBAVIRIN [Concomitant]
     Route: 048
     Dates: start: 20120530
  3. PEGASYS [Concomitant]
     Indication: HEPATITIS C
     Route: 058
     Dates: start: 20120502, end: 20120518
  4. INCIVEK [Suspect]
     Indication: HEPATITIS C
     Route: 048
     Dates: start: 20120502
  5. PROGRAF [Concomitant]
     Dates: start: 20060101, end: 20120518

REACTIONS (11)
  - BLOOD UREA INCREASED [None]
  - TRANSIENT ISCHAEMIC ATTACK [None]
  - CONFUSIONAL STATE [None]
  - BLOOD CREATININE INCREASED [None]
  - SCOTOMA [None]
  - BLOOD POTASSIUM INCREASED [None]
  - DIZZINESS [None]
  - ANAEMIA [None]
  - BALANCE DISORDER [None]
  - PALLOR [None]
  - OFF LABEL USE [None]
